FAERS Safety Report 23951523 (Version 1)
Quarter: 2024Q2

REPORT INFORMATION
  Report Type: Spontaneous
  Country: GB (occurrence: GB)
  Receive Date: 20240607
  Receipt Date: 20240607
  Transmission Date: 20240715
  Serious: Yes (Hospitalization)
  Sender: FDA-Public Use
  Company Number: GB-BEXIMCO-2024BEX00031

PATIENT
  Age: 46 Year
  Sex: Female

DRUGS (6)
  1. BACLOFEN [Suspect]
     Active Substance: BACLOFEN
     Dosage: 660 MG
     Route: 048
  2. SERTRALINE [Concomitant]
     Active Substance: SERTRALINE HYDROCHLORIDE
     Dosage: 100 MG, 1X/DAY IN THE MORNING
  3. ROPINIROLE [Concomitant]
     Active Substance: ROPINIROLE
     Indication: Restless legs syndrome
     Dosage: 500 ?G, 1X/DAY
  4. ESTRADIOL [Concomitant]
     Active Substance: ESTRADIOL
  5. NAPROXEN [Concomitant]
     Active Substance: NAPROXEN
     Dosage: UNK, AS NEEDED
  6. LANSOPRAZOLE [Concomitant]
     Active Substance: LANSOPRAZOLE

REACTIONS (3)
  - Acute psychosis [Recovering/Resolving]
  - Hypotonia [Recovered/Resolved]
  - Overdose [Recovered/Resolved]
